FAERS Safety Report 16226734 (Version 1)
Quarter: 2019Q2

REPORT INFORMATION
  Report Type: Spontaneous
  Country: US (occurrence: US)
  Receive Date: 20190423
  Receipt Date: 20190423
  Transmission Date: 20190711
  Serious: No
  Sender: FDA-Public Use
  Company Number: US-TEVA-2019-US-1039404

PATIENT
  Sex: Female

DRUGS (1)
  1. CLONIDINE TDS [Suspect]
     Active Substance: CLONIDINE
     Indication: HYPERTENSION
     Route: 062
     Dates: start: 20190307

REACTIONS (3)
  - Dysgeusia [Unknown]
  - Pain [Unknown]
  - Dysphonia [Unknown]

NARRATIVE: CASE EVENT DATE: 201903
